FAERS Safety Report 5072103-2 (Version None)
Quarter: 2006Q3

REPORT INFORMATION
  Report Type: 
  Country: None (occurrence: None)
  Receive Date: 20060807
  Receipt Date: 20060726
  Transmission Date: 20061208
  Serious: Yes (Life-Threatening, Hospitalization, Other)
  Sender: FDA-Public Use
  Company Number: JP-BRISTOL-MYERS SQUIBB COMPANY-13461165

PATIENT
  Age: 73 Year
  Sex: Female

DRUGS (18)
  1. GATIFLOXACIN [Suspect]
     Indication: ATYPICAL MYCOBACTERIAL INFECTION
     Dosage: THERAPY STOPPED IN JUL-2006 AND RESTARTED ON 21-JUL-2006.
     Route: 048
     Dates: start: 20060420, end: 20060722
  2. CLEANAL [Concomitant]
     Route: 048
  3. SELBEX [Concomitant]
     Route: 048
  4. LENDORMIN [Concomitant]
     Route: 048
  5. LENDORMIN [Concomitant]
     Route: 048
  6. CERCINE [Concomitant]
     Route: 048
  7. SUNRYTHM [Concomitant]
     Route: 048
  8. LIPITOR [Concomitant]
     Route: 048
  9. BUFFERIN [Concomitant]
     Route: 048
  10. ROCORNAL [Concomitant]
     Route: 048
  11. NITROGLYCERIN [Concomitant]
     Route: 062
  12. PANALDINE [Concomitant]
     Route: 048
  13. NITROPEN [Concomitant]
     Dosage: AS NEEDED
     Route: 060
  14. RIFAMPICIN [Concomitant]
     Route: 048
  15. VASOLAN [Concomitant]
     Route: 048
  16. SOLITA-T NO. 3 [Concomitant]
     Route: 042
  17. LACTEC [Concomitant]
     Route: 042
  18. CRAVIT [Concomitant]
     Route: 048

REACTIONS (1)
  - HYPOGLYCAEMIA [None]
